FAERS Safety Report 4279241-2 (Version None)
Quarter: 2004Q1

REPORT INFORMATION
  Report Type: 
  Country: None (occurrence: None)
  Receive Date: 20040127
  Receipt Date: 20040116
  Transmission Date: 20041129
  Serious: Yes (Other)
  Sender: FDA-Public Use
  Company Number: PHEH2004US00950

PATIENT
  Age: 73 Year
  Sex: Male

DRUGS (6)
  1. DIOVAN [Suspect]
     Indication: HYPERTENSION
     Dosage: 80 MG, QD
     Route: 048
     Dates: start: 20031001
  2. NORVASC [Concomitant]
     Indication: HYPERTENSION
     Dates: start: 19960101
  3. ACCUPRIL [Concomitant]
     Indication: HYPERTENSION
     Dates: start: 19960101
  4. GLIPIZIDE [Concomitant]
     Indication: DIABETES MELLITUS NON-INSULIN-DEPENDENT
  5. PRANDIN [Concomitant]
     Indication: DIABETES MELLITUS NON-INSULIN-DEPENDENT
     Dosage: UNK
  6. GLUCOPHAGE [Concomitant]
     Indication: DIABETES MELLITUS NON-INSULIN-DEPENDENT

REACTIONS (1)
  - BLOOD GLUCOSE INCREASED [None]
